FAERS Safety Report 23134380 (Version 1)
Quarter: 2023Q4

REPORT INFORMATION
  Report Type: Spontaneous
  Country: CN (occurrence: CN)
  Receive Date: 20231101
  Receipt Date: 20231101
  Transmission Date: 20240110
  Serious: Yes (Hospitalization)
  Sender: FDA-Public Use
  Company Number: CN-PFIZER INC-PV202300177413

PATIENT
  Age: 65 Year
  Sex: Male
  Weight: 70 kg

DRUGS (1)
  1. LINEZOLID [Suspect]
     Active Substance: LINEZOLID
     Indication: Enterococcal infection
     Dosage: 0.6 G, 2X/DAY
     Route: 048
     Dates: start: 20231014, end: 20231016

REACTIONS (2)
  - Hypoaesthesia [Recovering/Resolving]
  - Autoscopy [Unknown]

NARRATIVE: CASE EVENT DATE: 20231015
